FAERS Safety Report 9625012 (Version 1)
Quarter: 2013Q4

REPORT INFORMATION
  Report Type: Spontaneous
  Country: US (occurrence: US)
  Receive Date: 20131016
  Receipt Date: 20131016
  Transmission Date: 20140711
  Serious: No
  Sender: FDA-Public Use
  Company Number: US-009507513-1310USA000141

PATIENT
  Age: 63 Year
  Sex: Male

DRUGS (4)
  1. LIPTRUZET [Suspect]
     Indication: BLOOD TEST ABNORMAL
     Dosage: 10/80 MG, ONCE DAILY EACH NIGHT
     Route: 048
     Dates: start: 20130920
  2. ZANTAC [Concomitant]
  3. FENOFIBRATE [Concomitant]
  4. DILTIAZEM XR [Concomitant]
     Route: 048

REACTIONS (4)
  - Insomnia [Not Recovered/Not Resolved]
  - Abdominal pain [Not Recovered/Not Resolved]
  - Dyspepsia [Not Recovered/Not Resolved]
  - Nausea [Not Recovered/Not Resolved]
